FAERS Safety Report 21362199 (Version 7)
Quarter: 2022Q4

REPORT INFORMATION
  Report Type: Spontaneous
  Country: US (occurrence: US)
  Receive Date: 20220922
  Receipt Date: 20221229
  Transmission Date: 20230113
  Serious: No
  Sender: FDA-Public Use
  Company Number: US-MTPC-MTDA2022-0024660

PATIENT
  Sex: Male

DRUGS (4)
  1. RADICAVA [Suspect]
     Active Substance: EDARAVONE
     Indication: Amyotrophic lateral sclerosis
     Dosage: UNK
     Route: 065
  2. RILUZOLE [Concomitant]
     Active Substance: RILUZOLE
     Indication: Product used for unknown indication
     Dosage: UNK
     Route: 065
  3. DIETARY SUPPLEMENT\TAUROURSODEOXYCHOLIC ACID [Concomitant]
     Active Substance: DIETARY SUPPLEMENT\TAUROURSODEOXYCHOLIC ACID
  4. Sodium phenylbutyrate;Ursodoxicoltaurine [Concomitant]
     Indication: Product used for unknown indication
     Dosage: UNK
     Route: 065

REACTIONS (9)
  - Condition aggravated [Unknown]
  - Asthenia [Unknown]
  - Depressed mood [Unknown]
  - Anxiety [Unknown]
  - Fatigue [Unknown]
  - Paraesthesia [Unknown]
  - Dyspnoea [Unknown]
  - Feeling abnormal [Unknown]
  - Drug intolerance [Unknown]
